FAERS Safety Report 8934645 (Version 1)
Quarter: 2012Q4

REPORT INFORMATION
  Report Type: Report from Study
  Country: JP (occurrence: JP)
  Receive Date: 20121129
  Receipt Date: 20121129
  Transmission Date: 20130627
  Serious: Yes (Hospitalization)
  Sender: FDA-Public Use
  Company Number: JP-VERTEX PHARMACEUTICAL INC.-AE-2012-008092

PATIENT
  Age: 54 Year
  Sex: Male

DRUGS (6)
  1. VX-950 (TELAPREVIR) [Suspect]
     Indication: CHRONIC HEPATITIS C
     Dosage: 1500 mg, qd
     Route: 048
     Dates: start: 20120404, end: 20120523
  2. RIBAVIRIN [Concomitant]
     Dosage: 800 mg, qd
     Route: 048
     Dates: start: 20120404, end: 20120525
  3. PEGINTERFERON ALFA-2B [Concomitant]
     Dosage: 1.5 ?g/kg, qw
     Route: 058
     Dates: start: 20120404, end: 20120525
  4. GASTER [Concomitant]
     Dosage: 40 mg, qd
     Route: 048
     Dates: start: 20120409, end: 20120524
  5. PARIET [Concomitant]
     Dosage: 10 mg, qd
     Route: 048
     Dates: start: 20120525
  6. URSO                               /00465701/ [Concomitant]
     Dosage: 600 mg, qd
     Route: 048
     Dates: start: 20120525

REACTIONS (1)
  - Rash [Recovered/Resolved]
